FAERS Safety Report 9482268 (Version 2)
Quarter: 2013Q3

REPORT INFORMATION
  Report Type: Spontaneous
  Country: US (occurrence: US)
  Receive Date: 20130828
  Receipt Date: 20130830
  Transmission Date: 20140515
  Serious: Yes (Death)
  Sender: FDA-Public Use
  Company Number: US-ASTRAZENECA-2013SE65551

PATIENT
  Sex: Female

DRUGS (4)
  1. OMEPRAZOLE [Suspect]
     Route: 048
  2. METFORMIN [Interacting]
     Route: 048
  3. ZOLOFT [Interacting]
     Route: 065
  4. GLYBURIDE [Interacting]
     Route: 065

REACTIONS (2)
  - Drug interaction [Unknown]
  - Death [Fatal]
